FAERS Safety Report 7630875-4 (Version None)
Quarter: 2011Q3

REPORT INFORMATION
  Report Type: 
  Country: None (occurrence: None)
  Receive Date: 20110724
  Receipt Date: 20110712
  Transmission Date: 20111222
  Serious: Yes (Hospitalization)
  Sender: FDA-Public Use
  Company Number: US-AMGEN-USASP2011035516

PATIENT
  Age: 54 Year
  Sex: Female

DRUGS (2)
  1. TREXALL [Concomitant]
     Dosage: 5 MG, QWK
     Dates: start: 20060711
  2. ENBREL [Suspect]
     Indication: RHEUMATOID ARTHRITIS
     Dosage: 50 MG, QWK
     Dates: start: 20060711

REACTIONS (4)
  - RHEUMATOID ARTHRITIS [None]
  - BLOOD COUNT ABNORMAL [None]
  - PHARYNGITIS [None]
  - DRUG INEFFECTIVE [None]
